FAERS Safety Report 6784389-4 (Version None)
Quarter: 2010Q2

REPORT INFORMATION
  Report Type: 
  Country: None (occurrence: None)
  Receive Date: 20100622
  Receipt Date: 20100610
  Transmission Date: 20101027
  Serious: No
  Sender: FDA-Public Use
  Company Number: US-B.I. PHARMACEUTICALS,INC./RIDGEFIELD-2010-BP-05073BP

PATIENT
  Sex: Female

DRUGS (9)
  1. SPIRIVA [Suspect]
     Indication: CHRONIC OBSTRUCTIVE PULMONARY DISEASE
     Dosage: 18 MCG
     Route: 055
     Dates: start: 20100401, end: 20100415
  2. SPIRIVA [Suspect]
     Indication: DYSPNOEA
  3. FOSAMAX [Concomitant]
     Indication: OSTEOPOROSIS
  4. MULTI-VITAMIN [Concomitant]
     Indication: PROPHYLAXIS
  5. DILTIAZEM [Concomitant]
  6. CARDIZEM LX [Concomitant]
     Dosage: 120 MG
     Dates: start: 20091016
  7. FERROUS SO4 [Concomitant]
     Dosage: 325 MG
     Dates: start: 20091016
  8. CALCIUM CARBONATE [Concomitant]
     Dosage: 600 MG
     Dates: start: 20080222
  9. VITAMIN D3 [Concomitant]
     Dosage: 1000 U
     Dates: start: 20090416

REACTIONS (10)
  - ARTHRITIS [None]
  - BRONCHITIS [None]
  - COUGH [None]
  - DIZZINESS [None]
  - DRY MOUTH [None]
  - DYSPHONIA [None]
  - EYE IRRITATION [None]
  - EYE PAIN [None]
  - LARYNGITIS [None]
  - VISUAL ACUITY REDUCED [None]
